FAERS Safety Report 12741356 (Version 1)
Quarter: 2016Q3

REPORT INFORMATION
  Report Type: Spontaneous
  Country: US (occurrence: US)
  Receive Date: 20160914
  Receipt Date: 20160914
  Transmission Date: 20161109
  Serious: No
  Sender: FDA-Public Use
  Company Number: US-PFIZER INC-2016427202

PATIENT
  Age: 55 Year
  Sex: Male
  Weight: 88.45 kg

DRUGS (3)
  1. VIAGRA [Suspect]
     Active Substance: SILDENAFIL CITRATE
     Indication: ERECTILE DYSFUNCTION
     Dosage: 100MG TABLET BY MOUTH HALF AN HOUR BEFORE SEX WITH TWO BOTTLES OF WATER
     Route: 048
     Dates: start: 2015
  2. VIAGRA [Suspect]
     Active Substance: SILDENAFIL CITRATE
     Dosage: TOOK A TOTAL OF 200MG
     Route: 048
     Dates: start: 201608
  3. VIAGRA [Suspect]
     Active Substance: SILDENAFIL CITRATE
     Dosage: BROKE ONE IN HALF AND TOOK IT FOR A TOTAL OF 150MG
     Route: 048
     Dates: start: 201608

REACTIONS (7)
  - Nausea [Recovering/Resolving]
  - Vision blurred [Recovering/Resolving]
  - Drug ineffective [Unknown]
  - Photopsia [Recovered/Resolved]
  - Intentional product use issue [Unknown]
  - Cyanopsia [Recovered/Resolved]
  - Myalgia [Recovering/Resolving]

NARRATIVE: CASE EVENT DATE: 201608
